FAERS Safety Report 8065475-8 (Version None)
Quarter: 2011Q4

REPORT INFORMATION
  Report Type: 
  Country: None (occurrence: None)
  Receive Date: 20111221
  Receipt Date: 20110506
  Transmission Date: 20120403
  Serious: Yes (Other)
  Sender: FDA-Public Use
  Company Number: PHHY2011US40915

PATIENT
  Sex: Female

DRUGS (5)
  1. EXJADE [Suspect]
     Dosage: 500 MG
  2. PROGRAF [Concomitant]
  3. MULTIVITAMINS (ASCORBIC ACID, ERGOCALCIFEROL, FOLIC ACID, NICOTINAMIDE [Concomitant]
  4. MAGNESIUM (MAGNESIUM) [Concomitant]
  5. MAGNESIUM (MAGNESIUM) [Concomitant]

REACTIONS (1)
  - RENAL FUNCTION TEST ABNORMAL [None]
